FAERS Safety Report 8313387-4 (Version None)
Quarter: 2012Q2

REPORT INFORMATION
  Report Type: 
  Country: None (occurrence: None)
  Receive Date: 20120425
  Receipt Date: 20120425
  Transmission Date: 20120825
  Serious: Yes (Life-Threatening, Other)
  Sender: FDA-Public Use
  Company Number: None

PATIENT
  Sex: Male

DRUGS (2)
  1. MELLARIL [Suspect]
     Dosage: LIQUID
  2. HALDOL [Suspect]
     Dosage: ONE TABLET

REACTIONS (2)
  - HEADACHE [None]
  - PAIN IN EXTREMITY [None]
